FAERS Safety Report 15123846 (Version 1)
Quarter: 2018Q3

REPORT INFORMATION
  Report Type: Spontaneous
  Country: FR (occurrence: FR)
  Receive Date: 20180710
  Receipt Date: 20180710
  Transmission Date: 20181010
  Serious: Yes (Death)
  Sender: FDA-Public Use
  Company Number: FR-ROCHE-2151973

PATIENT
  Age: 67 Year
  Sex: Male

DRUGS (14)
  1. RITUXIMAB. [Suspect]
     Active Substance: RITUXIMAB
     Indication: B-CELL LYMPHOMA
     Route: 042
     Dates: start: 20180518, end: 20180518
  2. DOXORUBICINE [Suspect]
     Active Substance: DOXORUBICIN
     Indication: B-CELL LYMPHOMA
     Route: 042
     Dates: start: 20180518, end: 20180518
  3. ISOPHANE INSULIN [Suspect]
     Active Substance: INSULIN NOS
     Indication: DIABETES MELLITUS
     Route: 058
     Dates: start: 20180524
  4. HUMALOG [Concomitant]
     Active Substance: INSULIN LISPRO
     Route: 065
  5. CYCLOPHOSPHAMIDE. [Suspect]
     Active Substance: CYCLOPHOSPHAMIDE
     Indication: B-CELL LYMPHOMA
     Route: 042
     Dates: start: 20180518, end: 20180518
  6. VINCRISTINE SULFATE. [Suspect]
     Active Substance: VINCRISTINE SULFATE
     Indication: B-CELL LYMPHOMA
     Route: 042
     Dates: start: 20180518, end: 20180518
  7. CEFAZOLINE MYLAN [Suspect]
     Active Substance: CEFAZOLIN SODIUM
     Indication: INFECTION
     Route: 042
     Dates: start: 20180531, end: 20180613
  8. METHOTREXATE. [Suspect]
     Active Substance: METHOTREXATE
     Indication: B-CELL LYMPHOMA
     Route: 042
     Dates: start: 20180528, end: 20180528
  9. INNOHEP [Concomitant]
     Active Substance: TINZAPARIN SODIUM
     Route: 065
  10. VANCOMYCINE SANDOZ [Suspect]
     Active Substance: VANCOMYCIN
     Indication: INFECTION
     Dosage: 125 MG
     Route: 042
     Dates: start: 20180528, end: 20180611
  11. EUPANTOL [Concomitant]
     Active Substance: PANTOPRAZOLE SODIUM
     Route: 065
  12. CYTARABINE. [Suspect]
     Active Substance: CYTARABINE
     Indication: B-CELL LYMPHOMA
     Route: 042
     Dates: start: 20180528, end: 20180528
  13. LEVOFLOXACINE [Suspect]
     Active Substance: LEVOFLOXACIN
     Indication: INFECTION
     Route: 042
     Dates: start: 20180531, end: 20180613
  14. LEVETIRACETAM. [Suspect]
     Active Substance: LEVETIRACETAM
     Indication: SEIZURE
     Dosage: 100 MG/ML
     Route: 042
     Dates: start: 20180524

REACTIONS (1)
  - Jaundice cholestatic [Fatal]

NARRATIVE: CASE EVENT DATE: 20180606
